FAERS Safety Report 18432428 (Version 1)
Quarter: 2020Q4

REPORT INFORMATION
  Report Type: Report from Study
  Country: US (occurrence: US)
  Receive Date: 20201027
  Receipt Date: 20201027
  Transmission Date: 20210114
  Serious: Yes (Other)
  Sender: FDA-Public Use
  Company Number: US-JNJFOC-20201024345

PATIENT

DRUGS (2)
  1. STELARA [Suspect]
     Active Substance: USTEKINUMAB
     Indication: CROHN^S DISEASE
     Route: 058
     Dates: start: 20200817
  2. STELARA [Suspect]
     Active Substance: USTEKINUMAB

REACTIONS (7)
  - Muscular dystrophy [Unknown]
  - Osteoporosis [Unknown]
  - Arthritis [Unknown]
  - Product dose omission issue [Unknown]
  - Fatigue [Unknown]
  - Ehlers-Danlos syndrome [Unknown]
  - Spinal operation [Unknown]
